FAERS Safety Report 18184121 (Version 1)
Quarter: 2020Q3

REPORT INFORMATION
  Report Type: Spontaneous
  Country: FR (occurrence: FR)
  Receive Date: 20200823
  Receipt Date: 20200823
  Transmission Date: 20201103
  Serious: Yes (Hospitalization)
  Sender: FDA-Public Use
  Company Number: FR-ROCHE-2663095

PATIENT
  Age: 64 Year
  Sex: Female
  Weight: 84 kg

DRUGS (2)
  1. ZARZIO [Suspect]
     Active Substance: FILGRASTIM
     Indication: PROPHYLAXIS
     Dosage: DATE OF LAST ADMINISTRATION OF FILGRASTIM 27/MAR/2020
     Route: 046
     Dates: start: 20200325
  2. MABTHERA [Suspect]
     Active Substance: RITUXIMAB
     Indication: LYMPHOMA
     Dosage: DATE OF LAST ADMINISTRATION OF RITUXIMAB 19/MAR/2020
     Route: 065
     Dates: start: 20200205

REACTIONS (3)
  - Lung disorder [Unknown]
  - Pulmonary embolism [Unknown]
  - Bronchiolitis [Unknown]

NARRATIVE: CASE EVENT DATE: 20200401
